FAERS Safety Report 24674442 (Version 2)
Quarter: 2024Q4

REPORT INFORMATION
  Report Type: Spontaneous
  Country: NP (occurrence: NP)
  Receive Date: 20241128
  Receipt Date: 20241204
  Transmission Date: 20250115
  Serious: Yes (Life-Threatening, Hospitalization)
  Sender: MACLEODS
  Company Number: NP-MACLEODS PHARMA-MAC2024050415

PATIENT

DRUGS (1)
  1. AMLODIPINE [Suspect]
     Active Substance: AMLODIPINE BESYLATE
     Indication: Product used for unknown indication
     Dosage: 43 TABLETS, (A TOTAL OF 430 MG)
     Route: 048

REACTIONS (12)
  - Toxicity to various agents [Recovering/Resolving]
  - Loss of consciousness [Recovered/Resolved]
  - Tachycardia [Recovering/Resolving]
  - Non-cardiogenic pulmonary oedema [Recovering/Resolving]
  - Oliguria [Recovering/Resolving]
  - Dysuria [Recovering/Resolving]
  - Pyrexia [Recovering/Resolving]
  - Respiratory distress [Recovering/Resolving]
  - Urinary tract infection [Recovering/Resolving]
  - Respiratory failure [Recovering/Resolving]
  - Intentional overdose [Recovering/Resolving]
  - Hypotension [Recovering/Resolving]
